FAERS Safety Report 10168318 (Version 2)
Quarter: 2014Q2

REPORT INFORMATION
  Report Type: Report from Study
  Country: MX (occurrence: MX)
  Receive Date: 20140512
  Receipt Date: 20140512
  Transmission Date: 20141212
  Serious: Yes (Death)
  Sender: FDA-Public Use
  Company Number: PHHY2013MX135856

PATIENT
  Age: 76 Year
  Sex: Female

DRUGS (3)
  1. CO-DIOVAN [Suspect]
     Indication: HYPERTENSION
     Dosage: 1 TABLET (80/12.5 MG), DAILY
     Route: 048
     Dates: start: 201305
  2. COMENTER//MIRTAZAPINE [Concomitant]
     Indication: DEPRESSION
     Dosage: 1 TABLET, QD
     Dates: start: 201305
  3. TAFIL [Concomitant]
     Indication: SLEEP DISORDER
     Dosage: 0.25 DF, QD
     Dates: start: 201005

REACTIONS (5)
  - Death [Fatal]
  - Fall [Recovered/Resolved]
  - Blood cholesterol increased [Recovered/Resolved]
  - Pain in extremity [Not Recovered/Not Resolved]
  - Arthralgia [Unknown]
